FAERS Safety Report 7671400-1 (Version None)
Quarter: 2011Q3

REPORT INFORMATION
  Report Type: 
  Country: None (occurrence: None)
  Receive Date: 20110809
  Receipt Date: 20110726
  Transmission Date: 20111222
  Serious: Yes (Hospitalization, Other)
  Sender: FDA-Public Use
  Company Number: CA-ELI_LILLY_AND_COMPANY-CA201107006922

PATIENT
  Sex: Male

DRUGS (13)
  1. ATIVAN [Concomitant]
  2. PANTOLOC                           /01263202/ [Concomitant]
  3. ZYPREXA [Suspect]
     Dosage: 40 MG, EACH EVENING
  4. ZYPREXA [Suspect]
     Dosage: 55 MG, EACH EVENING
  5. ZYPREXA [Suspect]
     Dosage: 10 MG, EACH EVENING
  6. OXYCET [Concomitant]
  7. ZYPREXA [Suspect]
     Dosage: 20 MG, EACH EVENING
  8. CLOZAPINE [Concomitant]
  9. ZYPREXA ZYDIS [Suspect]
     Dosage: 15 MG, EACH EVENING
  10. ZYPREXA [Suspect]
     Dosage: 5 MG, EACH EVENING
  11. ZYPREXA ZYDIS [Suspect]
     Indication: SCHIZOPHRENIA, PARANOID TYPE
     Dosage: 10 MG, EACH EVENING
  12. ZYPREXA [Suspect]
     Indication: SCHIZOPHRENIA, PARANOID TYPE
     Dosage: 30 MG, EACH EVENING
  13. ZYPREXA ZYDIS [Suspect]
     Dosage: 40 MG, EACH EVENING

REACTIONS (3)
  - DIABETES MELLITUS [None]
  - PILONIDAL CYST [None]
  - OVERDOSE [None]
